FAERS Safety Report 10518466 (Version 3)
Quarter: 2016Q2

REPORT INFORMATION
  Report Type: Spontaneous
  Country: JP (occurrence: JP)
  Receive Date: 20141015
  Receipt Date: 20160530
  Transmission Date: 20160815
  Serious: Yes (Hospitalization, Other)
  Sender: FDA-Public Use
  Company Number: JP-JNJFOC-20141007760

PATIENT
  Age: 76 Year
  Sex: Female

DRUGS (22)
  1. LAC B [Concomitant]
     Active Substance: BIFIDOBACTERIUM SPP.
     Route: 048
     Dates: start: 20111118, end: 20141007
  2. REMICADE [Suspect]
     Active Substance: INFLIXIMAB
     Indication: BEHCET^S SYNDROME
     Route: 042
     Dates: start: 201202
  3. TOCOPHEROL ACETATE [Concomitant]
     Active Substance: .ALPHA.-TOCOPHEROL ACETATE
     Route: 048
     Dates: start: 20140502, end: 20141007
  4. IRSOGLADINE MALEATE [Concomitant]
     Active Substance: IRSOGLADINE MALEATE
     Route: 048
     Dates: start: 20110813, end: 20141007
  5. REMICADE [Suspect]
     Active Substance: INFLIXIMAB
     Indication: BEHCET^S SYNDROME
     Route: 042
     Dates: start: 20130926
  6. REMICADE [Suspect]
     Active Substance: INFLIXIMAB
     Indication: BEHCET^S SYNDROME
     Route: 042
     Dates: start: 20140926, end: 20140926
  7. METRONIDAZOLE. [Suspect]
     Active Substance: METRONIDAZOLE
     Indication: PELVIC ABSCESS
     Route: 048
     Dates: start: 20140509, end: 20141007
  8. ELENTAL [Concomitant]
     Active Substance: AMINO ACIDS\CARBOHYDRATES\MINERALS\SOYBEAN OIL\VITAMINS
     Route: 048
     Dates: start: 20110829
  9. ALCADOL [Concomitant]
     Route: 048
     Dates: start: 20110908, end: 20141007
  10. ISCOTIN [Suspect]
     Active Substance: ISONIAZID
     Indication: ANTIBIOTIC PROPHYLAXIS
     Route: 048
     Dates: start: 20111206, end: 20141007
  11. AMLODIPINE [Concomitant]
     Active Substance: AMLODIPINE BESYLATE
     Route: 048
     Dates: start: 20130802, end: 20141007
  12. REMICADE [Suspect]
     Active Substance: INFLIXIMAB
     Indication: BEHCET^S SYNDROME
     Route: 042
  13. REMICADE [Suspect]
     Active Substance: INFLIXIMAB
     Indication: BEHCET^S SYNDROME
     Route: 042
  14. SULFAMETHOXAZOLE AND TRIMETHOPRIM [Suspect]
     Active Substance: SULFAMETHOXAZOLE\TRIMETHOPRIM
     Indication: INFECTION PROPHYLAXIS
     Dosage: TWICE/WEEK 2 TAB
     Route: 048
     Dates: start: 20111107, end: 20141007
  15. PYDOXAL [Concomitant]
     Active Substance: PYRIDOXAL
     Route: 048
     Dates: start: 20111206, end: 20141007
  16. REMICADE [Suspect]
     Active Substance: INFLIXIMAB
     Indication: BEHCET^S SYNDROME
     Route: 042
     Dates: start: 201112
  17. REMICADE [Suspect]
     Active Substance: INFLIXIMAB
     Indication: BEHCET^S SYNDROME
     Route: 042
     Dates: start: 201108
  18. REMICADE [Suspect]
     Active Substance: INFLIXIMAB
     Indication: BEHCET^S SYNDROME
     Route: 042
  19. IMURAN [Suspect]
     Active Substance: AZATHIOPRINE
     Indication: CROHN^S DISEASE
     Route: 048
     Dates: start: 20110907, end: 20141007
  20. PENTASA [Concomitant]
     Active Substance: MESALAMINE
     Route: 065
  21. LANSOPRAZOLE. [Concomitant]
     Active Substance: LANSOPRAZOLE
     Route: 048
     Dates: start: 20110709, end: 20141007
  22. COLCHICINE. [Concomitant]
     Active Substance: COLCHICINE
     Route: 048

REACTIONS (2)
  - Pelvic abscess [Unknown]
  - Leukoencephalopathy [Recovered/Resolved]

NARRATIVE: CASE EVENT DATE: 20140509
